APPROVED DRUG PRODUCT: OMECLAMOX-PAK
Active Ingredient: AMOXICILLIN; CLARITHROMYCIN; OMEPRAZOLE
Strength: 500MG,N/A,N/A;N/A,500MG,N/A;N/A,N/A,20MG **Federal Register determination that product was not discontinued or withdrawn for safety or effectiveness reasons**
Dosage Form/Route: CAPSULE, TABLET, CAPSULE, DELAYED RELEASE;ORAL
Application: N050824 | Product #001
Applicant: CUMBERLAND PHARMACEUTICALS INC
Approved: Feb 8, 2011 | RLD: Yes | RS: No | Type: DISCN